FAERS Safety Report 4361490-6 (Version None)
Quarter: 2004Q2

REPORT INFORMATION
  Report Type: 
  Country: None (occurrence: None)
  Receive Date: 20040521
  Receipt Date: 20030915
  Transmission Date: 20050107
  Serious: No
  Sender: FDA-Public Use
  Company Number: US-GLAXOSMITHKLINE-A0425920A

PATIENT
  Age: 24 Year
  Sex: Male

DRUGS (2)
  1. ZYBAN [Suspect]
     Route: 048
     Dates: start: 20030828, end: 20030909
  2. NONE [Concomitant]

REACTIONS (4)
  - DELUSION [None]
  - DRY MOUTH [None]
  - INSOMNIA [None]
  - NIGHTMARE [None]
